FAERS Safety Report 4997826-2 (Version None)
Quarter: 2006Q2

REPORT INFORMATION
  Report Type: 
  Country: None (occurrence: None)
  Receive Date: 20060510
  Receipt Date: 20060427
  Transmission Date: 20061013
  Serious: Yes (Other)
  Sender: FDA-Public Use
  Company Number: PHNU2006DE01801

PATIENT
  Sex: Female

DRUGS (2)
  1. FEMARA [Suspect]
     Route: 048
     Dates: start: 20050101
  2. FOSAMAX [Concomitant]
     Route: 048

REACTIONS (1)
  - OSTEONECROSIS [None]
